FAERS Safety Report 5500780-8 (Version None)
Quarter: 2007Q4

REPORT INFORMATION
  Report Type: 
  Country: None (occurrence: None)
  Receive Date: 20071029
  Receipt Date: 20071024
  Transmission Date: 20080405
  Serious: Yes (Other)
  Sender: FDA-Public Use
  Company Number: A0654866A

PATIENT
  Age: 70 Year
  Sex: Male
  Weight: 72.3 kg

DRUGS (5)
  1. SEREVENT [Suspect]
     Indication: ASTHMA
     Dosage: 1PUFF TWICE PER DAY
     Route: 055
  2. UNSPECIFIED MEDICATION [Concomitant]
  3. PREDNISONE [Concomitant]
  4. SPIRIVA [Concomitant]
  5. UNSPECIFIED MEDICATION [Concomitant]

REACTIONS (9)
  - ASTHENIA [None]
  - ASTHMA [None]
  - DYSPNOEA [None]
  - FATIGUE [None]
  - PEAK EXPIRATORY FLOW RATE DECREASED [None]
  - PHARMACEUTICAL PRODUCT COMPLAINT [None]
  - SKIN IRRITATION [None]
  - SLEEP DISORDER [None]
  - UNDERDOSE [None]
